FAERS Safety Report 6266872-3 (Version None)
Quarter: 2009Q3

REPORT INFORMATION
  Report Type: 
  Country: None (occurrence: None)
  Receive Date: 20090714
  Receipt Date: 20090708
  Transmission Date: 20100115
  Serious: Yes (Other)
  Sender: FDA-Public Use
  Company Number: US-ASTRAZENECA-2009UW12922

PATIENT
  Age: 52 Year
  Sex: Female
  Weight: 84.8 kg

DRUGS (15)
  1. SEROQUEL [Suspect]
     Indication: DEPRESSION
     Dosage: 100 MG TO 300 MG
     Route: 048
     Dates: start: 20030101, end: 20080101
  2. SEROQUEL [Suspect]
     Indication: INSOMNIA
     Dosage: 100 MG TO 300 MG
     Route: 048
     Dates: start: 20030101, end: 20080101
  3. SEROQUEL [Suspect]
     Indication: POST-TRAUMATIC STRESS DISORDER
     Dosage: 100 MG TO 300 MG
     Route: 048
     Dates: start: 20030101, end: 20080101
  4. SEROQUEL [Suspect]
     Indication: SCHIZOPHRENIA
     Dosage: 100 MG TO 300 MG
     Route: 048
     Dates: start: 20030101, end: 20080101
  5. SEROQUEL [Suspect]
     Indication: BIPOLAR DISORDER
     Dosage: 100 MG TO 300 MG
     Route: 048
     Dates: start: 20030101, end: 20080101
  6. ZYPREXA [Concomitant]
     Dates: start: 20030101
  7. RISPERDAL [Concomitant]
     Dates: start: 20030101, end: 20030101
  8. RISPERDAL [Concomitant]
     Dates: start: 20060101, end: 20070101
  9. DEXATRIM [Concomitant]
  10. ABILIFY [Concomitant]
     Dates: start: 20080101
  11. CLOZARIL [Concomitant]
     Dates: start: 20080101
  12. HALDOL [Concomitant]
     Dates: start: 20030101
  13. THORAZINE [Concomitant]
     Dates: start: 20090101
  14. DIAZEPAM [Concomitant]
     Dates: start: 20090101
  15. OXCARBAZEPINE [Concomitant]
     Dates: start: 20090101

REACTIONS (5)
  - BLOOD CHOLESTEROL INCREASED [None]
  - MYOCARDIAL INFARCTION [None]
  - PANCREATITIS [None]
  - TYPE 2 DIABETES MELLITUS [None]
  - UTERINE DISORDER [None]
